FAERS Safety Report 5007321-2 (Version None)
Quarter: 2006Q2

REPORT INFORMATION
  Report Type: 
  Country: None (occurrence: None)
  Receive Date: 20060517
  Receipt Date: 20060505
  Transmission Date: 20061013
  Serious: Yes (Other)
  Sender: FDA-Public Use
  Company Number: 232759K06USA

PATIENT
  Age: 46 Year
  Sex: Female

DRUGS (3)
  1. REBIF [Suspect]
     Indication: MULTIPLE SCLEROSIS
     Dosage: 8.8 MCG
     Dates: start: 20060430, end: 20060501
  2. ALBUTEROL (SALBUTAMOL /00139501/) [Concomitant]
  3. ADVAIR (SERETIDE) [Concomitant]

REACTIONS (2)
  - DRUG HYPERSENSITIVITY [None]
  - SPEECH DISORDER [None]
